FAERS Safety Report 9472807 (Version 7)
Quarter: 2014Q1

REPORT INFORMATION
  Report Type: Report from Study
  Country: US (occurrence: US)
  Receive Date: 20130823
  Receipt Date: 20140321
  Transmission Date: 20141002
  Serious: Yes (Other)
  Sender: FDA-Public Use
  Company Number: PHEH2013US017880

PATIENT
  Age: 2 Year
  Sex: Female
  Weight: 12.3 kg

DRUGS (8)
  1. ILARIS [Suspect]
     Indication: CRYOPYRIN ASSOCIATED PERIODIC SYNDROME
     Dosage: 22 MG, EVERY 8 WEEKS
     Route: 058
     Dates: start: 20130516
  2. ILARIS [Suspect]
     Dosage: 22 MG, EVERY 8 WEEKS
     Route: 058
     Dates: start: 20130627
  3. ILARIS [Suspect]
     Dosage: 25 MG, UNK
  4. KEPPRA [Concomitant]
     Indication: CONVULSION
     Dosage: 250 MG, BID
     Route: 048
     Dates: start: 20121129
  5. MOBIC [Concomitant]
     Indication: ARTHRALGIA
     Dosage: 1.5 MG, QD
     Route: 048
     Dates: start: 20130827
  6. MOBIC [Concomitant]
     Dosage: UNK
     Dates: start: 20130927
  7. FLU VAX [Concomitant]
     Dates: start: 20131007
  8. MOTRIN [Concomitant]
     Indication: PYREXIA

REACTIONS (13)
  - Infection [Unknown]
  - Upper respiratory tract infection [Unknown]
  - Limb injury [Recovered/Resolved]
  - Erythema [Unknown]
  - Malaise [Unknown]
  - Pyrexia [Recovered/Resolved]
  - Pain [Recovered/Resolved]
  - Back pain [Unknown]
  - Ocular hyperaemia [Recovered/Resolved]
  - Eye pruritus [Unknown]
  - Lacrimation increased [Unknown]
  - Swelling [Recovered/Resolved]
  - Arthralgia [Unknown]
